FAERS Safety Report 8788683 (Version 1)
Quarter: 2012Q4

REPORT INFORMATION
  Report Type: 
  Country: BR (occurrence: BR)
  Receive Date: 20120917
  Receipt Date: 20120917
  Transmission Date: 20130627
  Serious: Yes (Other)
  Sender: FDA-Public Use
  Company Number: BR-AMGEN-BRASP2012015523

PATIENT
  Age: 46 Year
  Sex: Male
  Weight: 89 kg

DRUGS (3)
  1. ENBREL [Suspect]
     Indication: PSORIATIC ARTHROPATHY
     Dosage: 50 mg, weekly
     Route: 058
     Dates: start: 201204
  2. METHOTREXATE [Concomitant]
     Dosage: 15 mg, weekly
  3. LIPLESS [Concomitant]
     Indication: BLOOD TRIGLYCERIDES
     Dosage: 1 tablet of an unspecified dose, daily

REACTIONS (3)
  - Nodule [Unknown]
  - Pharyngitis [Unknown]
  - Injection site pain [Unknown]
